FAERS Safety Report 5919485-4 (Version None)
Quarter: 2008Q4

REPORT INFORMATION
  Report Type: 
  Country: None (occurrence: None)
  Receive Date: 20081015
  Receipt Date: 20081008
  Transmission Date: 20090506
  Serious: Yes (Disabling)
  Sender: FDA-Public Use
  Company Number: US-ELI_LILLY_AND_COMPANY-US200810001866

PATIENT
  Sex: Female

DRUGS (5)
  1. PROZAC [Suspect]
     Indication: DEPRESSION
     Dosage: 20 MG, DAILY (1/D)
     Route: 065
     Dates: start: 19920101
  2. PROZAC [Suspect]
     Dosage: 40 MG, DAILY (1/D)
     Route: 065
  3. PROZAC [Suspect]
     Dosage: 20 MG, DAILY (1/D)
     Route: 065
     Dates: end: 20060101
  4. CRESTOR [Concomitant]
     Dosage: UNK, UNKNOWN
     Route: 065
  5. TYSABRI [Concomitant]
     Dosage: UNK, UNKNOWN
     Route: 065

REACTIONS (5)
  - ABASIA [None]
  - BLOOD CHOLESTEROL INCREASED [None]
  - CATHETER PLACEMENT [None]
  - FATIGUE [None]
  - MULTIPLE SCLEROSIS [None]
